FAERS Safety Report 7440259-X (Version None)
Quarter: 2011Q2

REPORT INFORMATION
  Report Type: 
  Country: None (occurrence: None)
  Receive Date: 20110427
  Receipt Date: 20100609
  Transmission Date: 20111010
  Serious: No
  Sender: FDA-Public Use
  Company Number: US-PFIZER INC-2010072881

PATIENT
  Age: 6 Year
  Sex: Female

DRUGS (1)
  1. ZITHROMAX [Suspect]
     Dosage: 400 MG, UNK
     Route: 048

REACTIONS (5)
  - ERYTHEMA [None]
  - INCORRECT DOSE ADMINISTERED [None]
  - EAR PAIN [None]
  - TINNITUS [None]
  - OCULAR HYPERAEMIA [None]
